FAERS Safety Report 4639099-6 (Version None)
Quarter: 2005Q2

REPORT INFORMATION
  Report Type: 
  Country: None (occurrence: None)
  Receive Date: 20050418
  Receipt Date: 20050408
  Transmission Date: 20051028
  Serious: Yes (Hospitalization, Other)
  Sender: FDA-Public Use
  Company Number: 2004IC000784

PATIENT
  Age: 60 Year
  Sex: Male

DRUGS (7)
  1. TASMAR [Suspect]
     Indication: PARKINSON'S DISEASE
     Dosage: 100 MG; 3 TIMES A DAY; ORAL; SEE IMAGE
     Route: 048
     Dates: end: 20040806
  2. TASMAR [Suspect]
     Indication: PARKINSON'S DISEASE
     Dosage: 100 MG; 3 TIMES A DAY; ORAL; SEE IMAGE
     Route: 048
     Dates: start: 20040811
  3. PERGOLIDE MESYLATE [Suspect]
     Dosage: 4.5 GM
     Dates: start: 19980215
  4. CARBIDOPA AND LEVODOPA [Concomitant]
  5. AMANTADINE SULFATE [Concomitant]
  6. COMTESS [Concomitant]
  7. NACOM - SLOW RELEASE [Concomitant]

REACTIONS (3)
  - AORTIC VALVE SCLEROSIS [None]
  - BRONCHITIS ACUTE [None]
  - HEPATIC ENZYME INCREASED [None]
